FAERS Safety Report 7124392-8 (Version None)
Quarter: 2010Q4

REPORT INFORMATION
  Report Type: 
  Country: None (occurrence: None)
  Receive Date: 20101126
  Receipt Date: 20101112
  Transmission Date: 20110411
  Serious: Yes (Death)
  Sender: FDA-Public Use
  Company Number: GXKR2010US12815

PATIENT
  Age: 25 Year
  Sex: Female

DRUGS (2)
  1. VENLAFAXINE HCL [Suspect]
     Dosage: 210 TABLETS (15750 MG) AT ONCE
     Route: 065
  2. BUPROPION [Concomitant]
     Route: 065

REACTIONS (16)
  - ABDOMINAL COMPARTMENT SYNDROME [None]
  - ACUTE HEPATIC FAILURE [None]
  - ACUTE RESPIRATORY DISTRESS SYNDROME [None]
  - CARDIOGENIC SHOCK [None]
  - DIALYSIS [None]
  - DISSEMINATED INTRAVASCULAR COAGULATION [None]
  - ELECTROCARDIOGRAM QT PROLONGED [None]
  - ENDOTRACHEAL INTUBATION [None]
  - GASTROINTESTINAL HAEMORRHAGE [None]
  - HYPOTENSION [None]
  - INTRA-AORTIC BALLOON PLACEMENT [None]
  - LAPAROTOMY [None]
  - LOCALISED OEDEMA [None]
  - OVERDOSE [None]
  - RENAL FAILURE ACUTE [None]
  - TACHYCARDIA [None]
